FAERS Safety Report 8800607 (Version 2)
Quarter: 2012Q4

REPORT INFORMATION
  Report Type: 
  Country: VE (occurrence: VE)
  Receive Date: 20120921
  Receipt Date: 20121031
  Transmission Date: 20130627
  Serious: Yes (Hospitalization, Other)
  Sender: FDA-Public Use
  Company Number: VE-ELI_LILLY_AND_COMPANY-VE201209005360

PATIENT
  Age: 0 None
  Sex: Female

DRUGS (3)
  1. HUMALOG 25% LISPRO, 75% NPL [Suspect]
     Dosage: 10 u, each morning
     Route: 064
     Dates: start: 20120802, end: 20120807
  2. HUMALOG 25% LISPRO, 75% NPL [Suspect]
     Dosage: 10 u, each evening
     Dates: start: 20120802, end: 20120807
  3. PRENATAL VITAMINS                  /01549301/ [Concomitant]
     Route: 064

REACTIONS (4)
  - Premature baby [Recovered/Resolved]
  - Pneumonia [Recovered/Resolved]
  - Nosocomial infection [Recovered/Resolved]
  - Foetal exposure during pregnancy [Recovered/Resolved]
